FAERS Safety Report 4596586-7 (Version None)
Quarter: 2005Q1

REPORT INFORMATION
  Report Type: 
  Country: None (occurrence: None)
  Receive Date: 20050228
  Receipt Date: 20030908
  Transmission Date: 20050727
  Serious: Yes (Hospitalization)
  Sender: FDA-Public Use
  Company Number: 2002-DE-02943UP

PATIENT
  Age: 67 Year
  Sex: Female

DRUGS (8)
  1. MIRAPEXIN (PRAMIPEXOLE) [Suspect]
     Indication: DEPRESSION
     Dosage: 0.18 MG 0.18 MG, 1 IN 1 D) PO
     Route: 048
     Dates: start: 20020601, end: 20020804
  2. ZYVOXID (ANTIBACTERIALS FOR SYSTEMIC USE) (LO) [Suspect]
     Indication: BACTERIAL INFECTION
  3. LINEZOLID (ANTIBACTERIALS FOR SYSTEMIC USE) (TA) [Suspect]
     Indication: BACTERIAL INFECTION
     Dosage: 1200 MG (600 MG, 2 IN 1 D) PO
     Route: 048
     Dates: start: 20020221, end: 20020726
  4. TRAZODONE (TRAZODONE HYDROCHLORIDE) (TRAZODONE HCL) [Concomitant]
  5. SERTRALINE (SERTRALINE) (TA) (SERTRALINE-HCL) [Concomitant]
  6. PAROXETINE (PAROXETINE) (TA) [Concomitant]
  7. MOXIFLOXACIN (MOXIFLOXACIN) (TA) [Concomitant]
  8. MINOCYCLINE HCL [Concomitant]

REACTIONS (4)
  - BACTERIAL INFECTION [None]
  - NEUROPATHY PERIPHERAL [None]
  - OPTIC NEUROPATHY [None]
  - VISUAL FIELD DEFECT [None]
